FAERS Safety Report 23772915 (Version 1)
Quarter: 2024Q2

REPORT INFORMATION
  Report Type: Report from Study
  Country: DE (occurrence: DE)
  Receive Date: 20240423
  Receipt Date: 20240423
  Transmission Date: 20240715
  Serious: Yes (Other)
  Sender: FDA-Public Use
  Company Number: DE-JNJFOC-20240452159

PATIENT

DRUGS (1)
  1. TALVEY [Suspect]
     Active Substance: TALQUETAMAB-TGVS
     Indication: Product used for unknown indication
     Route: 065

REACTIONS (6)
  - Parosmia [Unknown]
  - Vomiting [Unknown]
  - Nausea [Unknown]
  - Dysgeusia [Unknown]
  - Pyrexia [Unknown]
  - Infection [Unknown]
